FAERS Safety Report 10469510 (Version 1)
Quarter: 2014Q3

REPORT INFORMATION
  Report Type: Spontaneous
  Country: US (occurrence: None)
  Receive Date: 20140904
  Receipt Date: 20140904
  Transmission Date: 20150326
  Serious: No
  Sender: FDA-Public Use
  Company Number: 228505LEO

PATIENT
  Sex: Male

DRUGS (1)
  1. PICATO [Suspect]
     Active Substance: INGENOL MEBUTATE
     Indication: ACTINIC KERATOSIS
     Route: 061
     Dates: start: 20140610

REACTIONS (4)
  - Drug administration error [None]
  - No adverse event [None]
  - Off label use [None]
  - Drug administered at inappropriate site [None]

NARRATIVE: CASE EVENT DATE: 20140610
